FAERS Safety Report 8612845-2 (Version None)
Quarter: 2012Q3

REPORT INFORMATION
  Report Type: 
  Country: None (occurrence: None)
  Receive Date: 20120822
  Receipt Date: 20120319
  Transmission Date: 20120928
  Serious: No
  Sender: FDA-Public Use
  Company Number: US-ASTRAZENECA-2011SE22779

PATIENT
  Age: 68 Year
  Sex: Male

DRUGS (3)
  1. SYMBICORT [Suspect]
     Dosage: 160/4.5 MCG, 2 PUFFS, EVERYDAY
     Route: 055
  2. SYMBICORT [Suspect]
     Dosage: 160/4.5 MCG, UNKNOWN
     Route: 055
  3. SYMBICORT [Suspect]
     Dosage: 160/4.5 MCG, 2 PUFFS, TWICE DAILY
     Route: 055

REACTIONS (4)
  - INCORRECT DOSE ADMINISTERED [None]
  - DRUG PRESCRIBING ERROR [None]
  - INFECTION [None]
  - OROPHARYNGEAL PAIN [None]
